FAERS Safety Report 24669126 (Version 1)
Quarter: 2024Q4

REPORT INFORMATION
  Report Type: Report from Study
  Country: US (occurrence: US)
  Receive Date: 20241127
  Receipt Date: 20241127
  Transmission Date: 20250115
  Serious: Yes (Hospitalization)
  Sender: TAKEDA
  Company Number: US-TAKEDA-2023TUS035476

PATIENT
  Sex: Female

DRUGS (5)
  1. TEDUGLUTIDE [Suspect]
     Active Substance: TEDUGLUTIDE
     Indication: Short-bowel syndrome
     Dosage: 0.3 MILLILITER, QD
     Dates: start: 20230322
  2. TEDUGLUTIDE [Suspect]
     Active Substance: TEDUGLUTIDE
     Dosage: 0.3 MILLILITER, QD
     Dates: start: 20230323
  3. TEDUGLUTIDE [Suspect]
     Active Substance: TEDUGLUTIDE
     Dosage: 0.3 MILLILITER, QD
     Dates: start: 202303
  4. TEDUGLUTIDE [Suspect]
     Active Substance: TEDUGLUTIDE
     Dosage: 0.25 MILLILITER, QD
  5. AMIODARONE [Concomitant]
     Active Substance: AMIODARONE
     Dosage: UNK

REACTIONS (16)
  - Palpitations [Unknown]
  - Blood pressure increased [Unknown]
  - Headache [Unknown]
  - Abdominal tenderness [Unknown]
  - Iron deficiency anaemia [Unknown]
  - Syringe issue [Unknown]
  - General physical health deterioration [Unknown]
  - Injection site mass [Unknown]
  - Conjunctival haemorrhage [Unknown]
  - Weight decreased [Not Recovered/Not Resolved]
  - Hypervolaemia [Unknown]
  - Dyspnoea [Unknown]
  - Nausea [Unknown]
  - Abdominal distension [Unknown]
  - Abdominal pain [Unknown]
  - Flatulence [Unknown]
